FAERS Safety Report 9451334 (Version 1)
Quarter: 2013Q3

REPORT INFORMATION
  Report Type: Spontaneous
  Country: US (occurrence: US)
  Receive Date: 20130809
  Receipt Date: 20130809
  Transmission Date: 20140515
  Serious: Yes (Disabling, Other)
  Sender: FDA-Public Use
  Company Number: US-TEVA-360498USA

PATIENT
  Sex: Female

DRUGS (2)
  1. METOCLOPRAMIDE [Suspect]
     Indication: GASTROOESOPHAGEAL REFLUX DISEASE
     Dates: start: 20040315, end: 20110617
  2. REGLAN [Suspect]
     Indication: GASTROOESOPHAGEAL REFLUX DISEASE

REACTIONS (14)
  - Tardive dyskinesia [Unknown]
  - Dyskinesia [Unknown]
  - Dystonia [Unknown]
  - Akathisia [Unknown]
  - Nervous system disorder [Unknown]
  - Nervous system disorder [Unknown]
  - Extrapyramidal disorder [Unknown]
  - Dyspnoea [Unknown]
  - Asthenia [Unknown]
  - Decreased activity [Unknown]
  - Dysphagia [Unknown]
  - Tremor [Unknown]
  - Dysphonia [Unknown]
  - Restless legs syndrome [Unknown]
